FAERS Safety Report 6748777-4 (Version None)
Quarter: 2010Q2

REPORT INFORMATION
  Report Type: 
  Country: None (occurrence: None)
  Receive Date: 20100601
  Receipt Date: 20100520
  Transmission Date: 20101027
  Serious: Yes (Other)
  Sender: FDA-Public Use
  Company Number: PHHY2010US32974

PATIENT
  Age: 11 Year
  Sex: Female

DRUGS (5)
  1. CARBAMAZEPINE [Suspect]
     Dosage: UNK
  2. LORAZEPAM [Concomitant]
     Dosage: UNK
  3. PHENYTOIN [Concomitant]
     Dosage: UNK
  4. VALPROIC ACID [Concomitant]
     Dosage: UNK
  5. IMMUNE GLOBULIN (HUMAN) [Concomitant]

REACTIONS (4)
  - BRAIN OPERATION [None]
  - CEREBELLAR ATROPHY [None]
  - CONVULSION [None]
  - NERVOUS SYSTEM DISORDER [None]
